FAERS Safety Report 7659945-1 (Version None)
Quarter: 2011Q3

REPORT INFORMATION
  Report Type: 
  Country: None (occurrence: None)
  Receive Date: 20110805
  Receipt Date: 20110802
  Transmission Date: 20111222
  Serious: Yes (Disabling)
  Sender: FDA-Public Use
  Company Number: US-BAYER-2011-068806

PATIENT
  Sex: Male

DRUGS (2)
  1. AVELOX [Suspect]
     Dosage: UNK
     Route: 048
     Dates: start: 20100101
  2. STEROIDS [Concomitant]
     Route: 048

REACTIONS (1)
  - TENDON RUPTURE [None]
